FAERS Safety Report 5738917-8 (Version None)
Quarter: 2008Q2

REPORT INFORMATION
  Report Type: 
  Country: None (occurrence: None)
  Receive Date: 20080515
  Receipt Date: 20080505
  Transmission Date: 20081010
  Serious: Yes (Disabling, Other)
  Sender: FDA-Public Use
  Company Number: US-ROCHE-553523

PATIENT
  Sex: Female
  Weight: 42.2 kg

DRUGS (5)
  1. TAMIFLU [Suspect]
     Route: 048
     Dates: start: 20080307, end: 20080312
  2. TAMIFLU [Suspect]
     Route: 048
     Dates: start: 20080310, end: 20080312
  3. SYNTHROID [Concomitant]
     Dosage: 1 TABLET DAILY EXCEPT FOR SUNDAY AND WEDNESDAY WHICH IS 1 AND 1/2 TABLETS DAILY.
     Route: 065
  4. NORVASC [Concomitant]
     Dosage: 1/4 TABLET DAILY
     Route: 065
  5. ACETAMINOPHEN [Concomitant]
     Dates: start: 20080301

REACTIONS (9)
  - CRYING [None]
  - DEPRESSION [None]
  - FATIGUE [None]
  - FEAR [None]
  - FEELING OF DESPAIR [None]
  - HALLUCINATION [None]
  - MAJOR DEPRESSION [None]
  - MENTAL STATUS CHANGES [None]
  - PYREXIA [None]
